FAERS Safety Report 16061428 (Version 1)
Quarter: 2019Q1

REPORT INFORMATION
  Report Type: Spontaneous
  Country: US (occurrence: US)
  Receive Date: 20190312
  Receipt Date: 20190312
  Transmission Date: 20190418
  Serious: No
  Sender: FDA-Public Use
  Company Number: US-ROCHE-2257603

PATIENT
  Sex: Female

DRUGS (2)
  1. ROMIPLOSTIM [Concomitant]
     Active Substance: ROMIPLOSTIM
  2. TECENTRIQ [Suspect]
     Active Substance: ATEZOLIZUMAB
     Indication: NON-SMALL CELL LUNG CANCER
     Route: 065
     Dates: start: 20190129

REACTIONS (1)
  - Platelet count decreased [Unknown]
